FAERS Safety Report 16560691 (Version 1)
Quarter: 2019Q3

REPORT INFORMATION
  Report Type: Spontaneous
  Country: SE (occurrence: SE)
  Receive Date: 20190711
  Receipt Date: 20190711
  Transmission Date: 20191004
  Serious: Yes (Other)
  Sender: FDA-Public Use
  Company Number: SE-ENDO PHARMACEUTICALS INC-2019-106212

PATIENT
  Age: 14 Month
  Sex: Female

DRUGS (1)
  1. FORTESTA [Suspect]
     Active Substance: TESTOSTERONE
     Indication: PRODUCT USED FOR UNKNOWN INDICATION
     Dosage: 2 %, UNKNOWN
     Route: 062
     Dates: start: 2014, end: 20190330

REACTIONS (4)
  - Virilism [Not Recovered/Not Resolved]
  - Accidental exposure to product by child [Unknown]
  - Exposure via skin contact [Unknown]
  - Product communication issue [Not Recovered/Not Resolved]

NARRATIVE: CASE EVENT DATE: 2014
